FAERS Safety Report 5445348-7 (Version None)
Quarter: 2007Q3

REPORT INFORMATION
  Report Type: 
  Country: None (occurrence: None)
  Receive Date: 20070906
  Receipt Date: 20070515
  Transmission Date: 20080115
  Serious: No
  Sender: FDA-Public Use
  Company Number: A0651403A

PATIENT
  Age: 60 Year
  Sex: Male

DRUGS (9)
  1. REQUIP [Suspect]
     Indication: RESTLESS LEGS SYNDROME
     Dosage: 1MG THREE TIMES PER DAY
     Route: 048
     Dates: start: 20070101
  2. INSULIN [Concomitant]
  3. PROTONIX [Concomitant]
  4. ACTOS [Concomitant]
  5. ZETIA [Concomitant]
  6. FUROSEMIDE [Concomitant]
  7. SPIRONOLACTONE [Concomitant]
  8. METANX [Concomitant]
  9. POTASSIUM CHLORIDE [Concomitant]

REACTIONS (2)
  - BURNING SENSATION [None]
  - HYPERSENSITIVITY [None]
